FAERS Safety Report 11811615 (Version 1)
Quarter: 2015Q4

REPORT INFORMATION
  Report Type: Spontaneous
  Country: JP (occurrence: JP)
  Receive Date: 20151208
  Receipt Date: 20151208
  Transmission Date: 20160305
  Serious: Yes (Life-Threatening, Hospitalization)
  Sender: FDA-Public Use
  Company Number: JP-BAYER-2015-482969

PATIENT
  Age: 84 Year
  Sex: Female

DRUGS (4)
  1. GADOVIST [Suspect]
     Active Substance: GADOBUTROL
     Indication: BLADDER NEOPLASM
  2. ZETIA [Concomitant]
     Active Substance: EZETIMIBE
     Route: 048
  3. ARTIST [Concomitant]
     Active Substance: CARVEDILOL
     Route: 048
  4. GADOVIST [Suspect]
     Active Substance: GADOBUTROL
     Indication: NUCLEAR MAGNETIC RESONANCE IMAGING
     Dosage: 5 ML, ONCE
     Route: 042
     Dates: start: 20151203, end: 20151203

REACTIONS (3)
  - Wheezing [Recovered/Resolved]
  - Dyspnoea [Recovered/Resolved]
  - Rash generalised [Recovered/Resolved]

NARRATIVE: CASE EVENT DATE: 20151203
